FAERS Safety Report 19816467 (Version 1)
Quarter: 2021Q3

REPORT INFORMATION
  Report Type: Spontaneous
  Country: IE (occurrence: IE)
  Receive Date: 20210909
  Receipt Date: 20210909
  Transmission Date: 20211014
  Serious: No
  Sender: FDA-Public Use
  Company Number: IE-LUPIN PHARMACEUTICALS INC.-2021-16748

PATIENT
  Age: 6 Decade
  Sex: Female

DRUGS (8)
  1. BIMATOPROST. [Suspect]
     Active Substance: BIMATOPROST
     Indication: MADAROSIS
     Dosage: UNK UNK, BID (OPHTHALMIC SOLUTION, 0.03%)
     Route: 061
  2. HYDROXYCHLOROQUINE [Suspect]
     Active Substance: HYDROXYCHLOROQUINE
     Indication: MADAROSIS
     Dosage: 200 MILLIGRAM, BID
     Route: 065
  3. BIMATOPROST. [Suspect]
     Active Substance: BIMATOPROST
     Indication: LICHEN PLANOPILARIS
  4. MINOXIDIL. [Suspect]
     Active Substance: MINOXIDIL
     Indication: MADAROSIS
     Dosage: UNK UNK, QD
     Route: 061
  5. MINOXIDIL. [Suspect]
     Active Substance: MINOXIDIL
     Indication: LICHEN PLANOPILARIS
  6. CLOBETASOL PROPIONATE. [Suspect]
     Active Substance: CLOBETASOL PROPIONATE
     Indication: MADAROSIS
     Dosage: TAPERING CLOBETASOL (0.05%) LOTION
     Route: 061
  7. HYDROXYCHLOROQUINE [Suspect]
     Active Substance: HYDROXYCHLOROQUINE
     Indication: LICHEN PLANOPILARIS
  8. CLOBETASOL PROPIONATE. [Suspect]
     Active Substance: CLOBETASOL PROPIONATE
     Indication: LICHEN PLANOPILARIS

REACTIONS (2)
  - Drug ineffective [Unknown]
  - Off label use [Unknown]
